FAERS Safety Report 4296991-2 (Version None)
Quarter: 2004Q1

REPORT INFORMATION
  Report Type: 
  Country: None (occurrence: None)
  Receive Date: 20040126
  Receipt Date: 20030828
  Transmission Date: 20041129
  Serious: No
  Sender: FDA-Public Use
  Company Number: USA030845748

PATIENT
  Age: 8 Year
  Sex: Male
  Weight: 28 kg

DRUGS (2)
  1. STRATTERA [Suspect]
     Dosage: 25 MG/1 IN THE MORNING
     Dates: start: 20030201
  2. MULTI-VITAMIN [Concomitant]

REACTIONS (2)
  - DYSPEPSIA [None]
  - FEELING ABNORMAL [None]
